FAERS Safety Report 11050820 (Version 1)
Quarter: 2015Q2

REPORT INFORMATION
  Report Type: Report from Study
  Country: US (occurrence: None)
  Receive Date: 20150417
  Receipt Date: 20150417
  Transmission Date: 20150821
  Serious: Yes (Hospitalization)
  Sender: FDA-Public Use
  Company Number: 2014SA050361

PATIENT
  Age: 64 Year
  Sex: Female

DRUGS (2)
  1. AUBAGIO [Suspect]
     Active Substance: TERIFLUNOMIDE
     Indication: MULTIPLE SCLEROSIS
     Route: 048
     Dates: start: 20140225, end: 20150101
  2. AVONEX [Concomitant]
     Active Substance: INTERFERON BETA-1A

REACTIONS (6)
  - Asthma [None]
  - Dyspepsia [None]
  - Drug dose omission [None]
  - Bronchitis [None]
  - Alopecia [None]
  - Muscle strain [None]

NARRATIVE: CASE EVENT DATE: 201503
